FAERS Safety Report 22136445 (Version 1)
Quarter: 2023Q1

REPORT INFORMATION
  Report Type: Spontaneous
  Country: US (occurrence: US)
  Receive Date: 20230324
  Receipt Date: 20230324
  Transmission Date: 20230418
  Serious: Yes (Hospitalization)
  Sender: FDA-Public Use
  Company Number: US-MYLANLABS-2023M1031345

PATIENT
  Age: 5 Year
  Sex: Male

DRUGS (5)
  1. DEXAMETHASONE [Suspect]
     Active Substance: DEXAMETHASONE
     Indication: B precursor type acute leukaemia
     Dosage: UNK UNK, CYCLE; RECEIVED AS PULSE MAINTENANCE THERAPY
     Route: 065
  2. METHOTREXATE [Suspect]
     Active Substance: METHOTREXATE
     Indication: B precursor type acute leukaemia
     Dosage: UNK UNK, CYCLE; RECEIVED PER WEEK UNDER MAINTENANCE THERAPY
     Route: 048
  3. MERCAPTOPURINE [Suspect]
     Active Substance: MERCAPTOPURINE
     Indication: B precursor type acute leukaemia
     Dosage: UNK, CYCLE; RECEIVED DAILY UNDER MAINTENANCE THERAPY
     Route: 048
  4. METHOTREXATE [Suspect]
     Active Substance: METHOTREXATE
     Indication: B precursor type acute leukaemia
     Dosage: UNK, CYCLE; RECEIVED EVERY 12 WEEKS UNDER MAINTENANCE THERAPY
     Route: 037
  5. VINCRISTINE [Suspect]
     Active Substance: VINCRISTINE
     Indication: B precursor type acute leukaemia
     Dosage: UNK UNK, CYCLE; RECEIVED AS PULSE MAINTENANCE THERAPY
     Route: 065

REACTIONS (4)
  - Human anaplasmosis [Recovered/Resolved]
  - Babesiosis [Recovered/Resolved]
  - Cytopenia [Recovered/Resolved]
  - Haemoglobin decreased [Recovered/Resolved]
